FAERS Safety Report 8410027 (Version 8)
Quarter: 2013Q1

REPORT INFORMATION
  Report Type: Spontaneous
  Country: US (occurrence: US)
  Receive Date: 20120216
  Receipt Date: 20130311
  Transmission Date: 20140127
  Serious: Yes (Hospitalization, Other)
  Sender: FDA-Public Use
  Company Number: US-009507513-1202USA02279

PATIENT
  Sex: Female
  Weight: 67.57 kg

DRUGS (11)
  1. FOSAMAX [Suspect]
     Indication: OSTEOPOROSIS
     Dosage: 10 MG, UNK
     Route: 048
     Dates: start: 19980203, end: 200010
  2. FOSAMAX [Suspect]
     Dosage: 70 MG, QW
     Route: 048
     Dates: start: 200010, end: 200803
  3. FOSAMAX [Suspect]
     Indication: OSTEOPENIA
     Dosage: 70 MG, QW
     Route: 048
     Dates: start: 20080419, end: 201103
  4. FOSAMAX [Suspect]
     Indication: OSTEOPOROSIS
     Dosage: 70 MG, QW
     Route: 048
     Dates: start: 20080419, end: 20080630
  5. ALENDRONATE SODIUM [Suspect]
     Indication: OSTEOPOROSIS
     Dosage: 70 MG, UNK
     Route: 048
     Dates: start: 20081031, end: 20110201
  6. CALCIUM (UNSPECIFIED) (+) VITAMIN D (UNSPECIFIED) [Concomitant]
     Dosage: 600/2800
     Route: 048
     Dates: start: 1990
  7. MK-9278 [Concomitant]
     Dosage: UNK UNK, QD
     Route: 048
     Dates: start: 2000
  8. LAMICTAL [Concomitant]
     Indication: OSTEOPENIA
     Route: 048
     Dates: start: 2003, end: 2009
  9. ESTROGENS (UNSPECIFIED) [Concomitant]
  10. ORUDIS [Concomitant]
     Indication: MUSCLE STRAIN
  11. PREMARIN [Concomitant]
     Dosage: 1.25 MG, UNK
     Route: 048

REACTIONS (87)
  - Femur fracture [Recovered/Resolved]
  - Surgery [Unknown]
  - Cerebrovascular accident [Unknown]
  - Hyponatraemia [Unknown]
  - Fractured sacrum [Unknown]
  - Pelvic fracture [Unknown]
  - Anaemia postoperative [Unknown]
  - Nervous system disorder [Unknown]
  - Basal ganglia infarction [Unknown]
  - Cystopexy [Unknown]
  - Biopsy breast [Unknown]
  - Cerebrovascular accident [Unknown]
  - Thalamic infarction [Unknown]
  - Presyncope [Unknown]
  - Epilepsy [Unknown]
  - Appendix disorder [Unknown]
  - Cystocele [Unknown]
  - Rectocele [Unknown]
  - Tonsillar disorder [Unknown]
  - Stress urinary incontinence [Unknown]
  - Loss of consciousness [Unknown]
  - Bunion [Unknown]
  - Fractured sacrum [Not Recovered/Not Resolved]
  - Ulna fracture [Unknown]
  - Low turnover osteopathy [Unknown]
  - Breast calcifications [Unknown]
  - Arteriosclerosis [Unknown]
  - Coronary artery disease [Unknown]
  - Blood pressure [Unknown]
  - Blood cholesterol increased [Unknown]
  - Urinary incontinence [Unknown]
  - Cough [Unknown]
  - Rhinitis [Unknown]
  - Pleuritic pain [Unknown]
  - Chills [Unknown]
  - Night sweats [Unknown]
  - Scar [Unknown]
  - Atrioventricular block first degree [Unknown]
  - Ecchymosis [Unknown]
  - Depression [Unknown]
  - Thermal burn [Unknown]
  - Radiculitis lumbosacral [Unknown]
  - Facet joint syndrome [Unknown]
  - Sacroiliitis [Unknown]
  - Fall [Unknown]
  - Ligament sprain [Unknown]
  - Cerebral atrophy [Unknown]
  - Cerebral small vessel ischaemic disease [Unknown]
  - Carotid artery stenosis [Not Recovered/Not Resolved]
  - Road traffic accident [Unknown]
  - Tendon injury [Unknown]
  - Fall [Unknown]
  - Pulmonary mass [Unknown]
  - Injury [Unknown]
  - Vaginismus [Unknown]
  - Blood alkaline phosphatase increased [Unknown]
  - Bacterial test positive [Unknown]
  - Chest pain [Unknown]
  - Bursitis [Unknown]
  - Cough [Unknown]
  - Head injury [Unknown]
  - Laceration [Unknown]
  - Bone metabolism disorder [Unknown]
  - Balance disorder [Unknown]
  - Contusion [Unknown]
  - Contusion [Unknown]
  - Laceration [Unknown]
  - Contusion [Unknown]
  - Goitre [Unknown]
  - Periarthritis [Not Recovered/Not Resolved]
  - Cartilage injury [Unknown]
  - Blood calcium abnormal [Unknown]
  - Cardiac murmur [Unknown]
  - Inflammation [Unknown]
  - Hypertonic bladder [Unknown]
  - Tremor [Unknown]
  - Muscle rigidity [Unknown]
  - Anxiety [Unknown]
  - Nervousness [Unknown]
  - Arthralgia [Unknown]
  - Muscle spasms [Unknown]
  - Local swelling [Unknown]
  - Local swelling [Unknown]
  - Arthralgia [Unknown]
  - Pain in extremity [Unknown]
  - Headache [Unknown]
  - Headache [Unknown]
